FAERS Safety Report 23925348 (Version 1)
Quarter: 2024Q2

REPORT INFORMATION
  Report Type: Spontaneous
  Country: US (occurrence: None)
  Receive Date: 20240529
  Receipt Date: 20240529
  Transmission Date: 20240715
  Serious: No
  Sender: FDA-Public Use
  Company Number: None

PATIENT
  Sex: 0

DRUGS (2)
  1. CLINDAMYCIN [Suspect]
     Active Substance: CLINDAMYCIN
     Indication: Acne
     Route: 061
  2. COSMETICS [Suspect]
     Active Substance: COSMETICS
     Route: 061

REACTIONS (2)
  - Product preparation error [None]
  - Product storage error [None]
